FAERS Safety Report 6616449-2 (Version None)
Quarter: 2010Q1

REPORT INFORMATION
  Report Type: 
  Country: None (occurrence: None)
  Receive Date: 20100305
  Receipt Date: 20100305
  Transmission Date: 20100710
  Serious: Yes (Hospitalization)
  Sender: FDA-Public Use
  Company Number: PHHO2010TW00483

PATIENT
  Sex: Male
  Weight: 70 kg

DRUGS (2)
  1. ACZ885 ACZ+ [Suspect]
     Indication: GOUT
     Dosage: 25 MG, ONCE/SINGLE
     Route: 058
     Dates: start: 20090702, end: 20091026
  2. INTERLEUKIN-1 [Concomitant]
     Indication: GOUTY ARTHRITIS

REACTIONS (13)
  - ABDOMINAL PAIN LOWER [None]
  - ARTHRALGIA [None]
  - BLADDER CATHETERISATION [None]
  - CONSTIPATION [None]
  - DYSURIA [None]
  - ERYTHEMA [None]
  - GAIT DISTURBANCE [None]
  - GOUT [None]
  - HAEMATURIA [None]
  - LEUKOCYTOSIS [None]
  - OEDEMA PERIPHERAL [None]
  - URINARY RETENTION [None]
  - URINARY TRACT INFECTION [None]
